FAERS Safety Report 25370283 (Version 1)
Quarter: 2025Q2

REPORT INFORMATION
  Report Type: Spontaneous
  Country: US (occurrence: US)
  Receive Date: 20250528
  Receipt Date: 20250528
  Transmission Date: 20250717
  Serious: No
  Sender: SANOFI AVENTIS
  Company Number: US-SA-2025SA150808

PATIENT
  Sex: Male
  Weight: 77.11 kg

DRUGS (12)
  1. DUPIXENT [Suspect]
     Active Substance: DUPILUMAB
     Indication: Dermatitis atopic
     Dosage: 300 MG, QOW
     Route: 058
  2. VITAMINS [Concomitant]
     Active Substance: VITAMINS
  3. MUPIROCIN [Concomitant]
     Active Substance: MUPIROCIN
  4. SIMVASTATIN [Concomitant]
     Active Substance: SIMVASTATIN
  5. GLIPIZIDE [Concomitant]
     Active Substance: GLIPIZIDE
  6. XARELTO [Concomitant]
     Active Substance: RIVAROXABAN
  7. METFORMIN HYDROCHLORIDE [Concomitant]
     Active Substance: METFORMIN HYDROCHLORIDE
  8. HYDROCHLOROTHIAZIDE [Concomitant]
     Active Substance: HYDROCHLOROTHIAZIDE
  9. CARVEDILOL [Concomitant]
     Active Substance: CARVEDILOL
  10. LOSARTAN POTASSIUM [Concomitant]
     Active Substance: LOSARTAN POTASSIUM
  11. OMEGA 3 6 9 COMPLEX [Concomitant]
  12. ASCORBIC ACID\CYANOCOBALAMIN\FOLIC ACID\IRON [Concomitant]
     Active Substance: ASCORBIC ACID\CYANOCOBALAMIN\FOLIC ACID\IRON

REACTIONS (3)
  - Weight decreased [Unknown]
  - Weight gain poor [Unknown]
  - Bowel movement irregularity [Unknown]
